FAERS Safety Report 10206190 (Version 1)
Quarter: 2014Q2

REPORT INFORMATION
  Report Type: Spontaneous
  Country: US (occurrence: None)
  Receive Date: 20140527
  Receipt Date: 20140527
  Transmission Date: 20141212
  Serious: No
  Sender: FDA-Public Use
  Company Number: None

PATIENT
  Age: 70 Year
  Sex: Female

DRUGS (6)
  1. EXJADE [Suspect]
     Indication: TOXICITY TO VARIOUS AGENTS
     Route: 048
     Dates: start: 20120522
  2. LOTEMAX [Concomitant]
  3. IBUPROFEN [Concomitant]
  4. PROAIR [Concomitant]
  5. ADVAIR [Concomitant]
  6. ANAGRELIDE [Concomitant]

REACTIONS (2)
  - Diarrhoea [None]
  - Haemorrhoids [None]
